FAERS Safety Report 5578693-5 (Version None)
Quarter: 2008Q1

REPORT INFORMATION
  Report Type: 
  Country: None (occurrence: None)
  Receive Date: 20080102
  Receipt Date: 20071221
  Transmission Date: 20080703
  Serious: Yes (Hospitalization)
  Sender: FDA-Public Use
  Company Number: FR-JNJFOC-20071206170

PATIENT
  Age: 57 Year
  Sex: Female

DRUGS (7)
  1. TRAMADOL HCL [Suspect]
     Indication: DRUG USE FOR UNKNOWN INDICATION
     Route: 065
  2. DOCETAXEL [Suspect]
     Indication: BREAST CANCER
     Route: 042
  3. BEVACIZUMAB/PLACEBO [Suspect]
     Indication: BREAST CANCER
     Route: 042
  4. LYSANXIA [Concomitant]
     Route: 065
  5. ALBUTEROL [Concomitant]
     Route: 065
  6. BUDESONIDE [Concomitant]
     Route: 065
  7. SUPROFEN [Concomitant]
     Route: 065

REACTIONS (3)
  - CONSTIPATION [None]
  - LIVER DISORDER [None]
  - NEUTROPENIA [None]
